FAERS Safety Report 20328982 (Version 6)
Quarter: 2022Q1

REPORT INFORMATION
  Report Type: Report from Study
  Country: CO (occurrence: CO)
  Receive Date: 20220112
  Receipt Date: 20220308
  Transmission Date: 20220423
  Serious: Yes (Hospitalization, Other)
  Sender: FDA-Public Use
  Company Number: CO-TAKEDA-CO202028268

PATIENT
  Age: 26 Year
  Sex: Male
  Weight: 48 kg

DRUGS (10)
  1. IDURSULFASE [Suspect]
     Active Substance: IDURSULFASE
     Indication: Mucopolysaccharidosis II
     Dosage: 24 MILLIGRAM, 1/WEEK
     Route: 042
     Dates: start: 20151028
  2. IDURSULFASE [Suspect]
     Active Substance: IDURSULFASE
     Dosage: 24 MILLIGRAM, 1/WEEK
     Route: 065
     Dates: start: 20151228
  3. IDURSULFASE [Suspect]
     Active Substance: IDURSULFASE
     Dosage: 24 MILLIGRAM, 1/WEEK
     Route: 042
     Dates: start: 20180102
  4. REPLAGAL [Suspect]
     Active Substance: AGALSIDASE ALFA
     Indication: Product used for unknown indication
     Dosage: 24 MILLIGRAM
     Route: 065
  5. FORMOTEROL [Concomitant]
     Active Substance: FORMOTEROL
     Dosage: UNK UNK, QD
     Route: 065
  6. BUDESONIDE [Concomitant]
     Active Substance: BUDESONIDE
     Dosage: UNK UNK, QD
     Route: 065
  7. MONTELUKAST [Concomitant]
     Active Substance: MONTELUKAST SODIUM
     Route: 065
  8. IPRATROPIUM BROMIDE [Concomitant]
     Active Substance: IPRATROPIUM BROMIDE
     Dosage: UNK UNK, Q8HR
     Route: 065
  9. ALBUTEROL [Concomitant]
     Active Substance: ALBUTEROL
     Dosage: UNK UNK, Q8HR
     Route: 065
  10. OXYGEN [Concomitant]
     Active Substance: OXYGEN
     Dosage: UNK
     Route: 065

REACTIONS (40)
  - Urinary tract infection [Recovering/Resolving]
  - Hypertrophy [Unknown]
  - Aortic valve thickening [Unknown]
  - Pericardial effusion [Unknown]
  - COVID-19 [Unknown]
  - Fascial infection [Unknown]
  - Macroglossia [Unknown]
  - Suspected COVID-19 [Not Recovered/Not Resolved]
  - Weight decreased [Unknown]
  - Productive cough [Not Recovered/Not Resolved]
  - Nasopharyngitis [Not Recovered/Not Resolved]
  - Dysphonia [Not Recovered/Not Resolved]
  - Nasal congestion [Not Recovered/Not Resolved]
  - Cough [Not Recovered/Not Resolved]
  - Diarrhoea [Not Recovered/Not Resolved]
  - Weight increased [Unknown]
  - Headache [Unknown]
  - Odynophagia [Unknown]
  - Macrocephaly [Unknown]
  - Alanine aminotransferase increased [Unknown]
  - Aspartate aminotransferase increased [Unknown]
  - Body temperature increased [Unknown]
  - Nose deformity [Unknown]
  - Nasal discomfort [Unknown]
  - Nasal turbinate hypertrophy [Unknown]
  - Mallampati score [Unknown]
  - Neck deformity [Unknown]
  - Oxygen saturation decreased [Unknown]
  - Limb deformity [Unknown]
  - Hand deformity [Unknown]
  - Malaise [Unknown]
  - Gait disturbance [Unknown]
  - Knee deformity [Unknown]
  - Musculoskeletal discomfort [Unknown]
  - Foot deformity [Unknown]
  - Nervous system disorder [Unknown]
  - Breath sounds abnormal [Unknown]
  - Hypoacusis [Unknown]
  - Intervertebral disc disorder [Unknown]
  - Cholelithiasis [Unknown]

NARRATIVE: CASE EVENT DATE: 20160630
